FAERS Safety Report 5401132-1 (Version None)
Quarter: 2007Q3

REPORT INFORMATION
  Report Type: 
  Country: None (occurrence: None)
  Receive Date: 20070731
  Receipt Date: 20070723
  Transmission Date: 20080115
  Serious: Yes (Other)
  Sender: FDA-Public Use
  Company Number: PHBS2007DE12388

PATIENT
  Age: 65 Year
  Sex: Female

DRUGS (4)
  1. ZOMETA [Suspect]
     Indication: METASTASES TO BONE
  2. AREDIA [Suspect]
  3. LETROZOLE [Concomitant]
  4. AROMASIN [Concomitant]

REACTIONS (14)
  - BIOPSY [None]
  - BLOOD CREATININE INCREASED [None]
  - BONE DISORDER [None]
  - BONE MARROW TUMOUR CELL INFILTRATION [None]
  - BONE PAIN [None]
  - DENTURE WEARER [None]
  - IMPAIRED HEALING [None]
  - METASTASES TO BONE [None]
  - OSTEOMYELITIS [None]
  - RADIOTHERAPY [None]
  - SURGERY [None]
  - THROMBOCYTOPENIA [None]
  - ULCER [None]
  - WOUND TREATMENT [None]
